FAERS Safety Report 5966167-9 (Version None)
Quarter: 2008Q4

REPORT INFORMATION
  Report Type: 
  Country: None (occurrence: None)
  Receive Date: 20081125
  Receipt Date: 20081119
  Transmission Date: 20090506
  Serious: Yes (Hospitalization, Other)
  Sender: FDA-Public Use
  Company Number: HU-ROCHE-597920

PATIENT
  Sex: Female
  Weight: 81 kg

DRUGS (2)
  1. RIBAVIRIN [Suspect]
     Dosage: TEMPORARILY INTERRUPTED. FORM: TBL
     Route: 065
     Dates: start: 20081008, end: 20081029
  2. RIBAVIRIN [Suspect]
     Route: 065

REACTIONS (2)
  - ANAEMIA [None]
  - DIVERTICULITIS [None]
